FAERS Safety Report 8206116-6 (Version None)
Quarter: 2012Q1

REPORT INFORMATION
  Report Type: 
  Country: None (occurrence: None)
  Receive Date: 20120313
  Receipt Date: 20120309
  Transmission Date: 20120608
  Serious: Yes (Death)
  Sender: FDA-Public Use
  Company Number: US-GILEAD-2012-0051775

PATIENT
  Sex: Female

DRUGS (6)
  1. LETAIRIS [Suspect]
     Indication: LUNG DISORDER
  2. LETAIRIS [Suspect]
     Indication: RIGHT VENTRICULAR DYSFUNCTION
  3. LETAIRIS [Suspect]
     Indication: PULMONARY HYPERTENSION
     Dosage: 10 MG, UNK
     Route: 048
     Dates: start: 20100312, end: 20111224
  4. LETAIRIS [Suspect]
     Indication: UNEVALUABLE EVENT
  5. LETAIRIS [Suspect]
     Indication: TRICUSPID VALVE INCOMPETENCE
  6. LETAIRIS [Suspect]
     Indication: ATRIAL SEPTAL DEFECT

REACTIONS (2)
  - RESPIRATORY FAILURE [None]
  - PULMONARY HYPERTENSION [None]
